FAERS Safety Report 4310965-4 (Version None)
Quarter: 2004Q1

REPORT INFORMATION
  Report Type: 
  Country: None (occurrence: None)
  Receive Date: 20040304
  Receipt Date: 20040203
  Transmission Date: 20041129
  Serious: Yes (Hospitalization)
  Sender: FDA-Public Use
  Company Number: 200410430FR

PATIENT
  Age: 84 Year
  Sex: Female

DRUGS (6)
  1. FUROSEMIDE [Suspect]
     Route: 048
  2. CATALGINE [Concomitant]
     Route: 048
  3. SPIROCTAN [Concomitant]
     Route: 048
  4. TARDYFERON [Concomitant]
     Route: 048
  5. CORDARONE [Concomitant]
     Route: 048
  6. DIGOXIN [Concomitant]
     Route: 048

REACTIONS (4)
  - DISORIENTATION [None]
  - HYPONATRAEMIA [None]
  - MENTAL IMPAIRMENT [None]
  - OVERDOSE [None]
